FAERS Safety Report 21786156 (Version 1)
Quarter: 2022Q4

REPORT INFORMATION
  Report Type: Other
  Country: US (occurrence: None)
  Receive Date: 20221228
  Receipt Date: 20221228
  Transmission Date: 20230113
  Serious: Yes (Other)
  Sender: FDA-Public Use
  Company Number: US-Saptalis Pharmaceuticals,LLC-000323

PATIENT
  Age: 76 Year
  Sex: Female

DRUGS (5)
  1. TRIAMCINOLONE ACETONIDE [Suspect]
     Active Substance: TRIAMCINOLONE ACETONIDE
     Indication: Necrotising scleritis
     Dosage: 0.25 ML IN 40 MG/ML
     Route: 057
  2. CEFTAZIDIME [Suspect]
     Active Substance: CEFTAZIDIME
     Indication: Pseudomonas infection
     Dosage: 50 MG/ML HOURLY
  3. PREDNISOLONE ACETATE [Suspect]
     Active Substance: PREDNISOLONE ACETATE
     Indication: Pseudomonas infection
     Dosage: 1% WAS ADDED FOUR?TIMES DAILY
  4. ATROPINE [Suspect]
     Active Substance: ATROPINE
     Indication: Pseudomonas infection
  5. CIPROFLOXACIN [Suspect]
     Active Substance: CIPROFLOXACIN
     Indication: Pseudomonas infection
     Dosage: 500 MG TWICE DAILY
     Route: 048

REACTIONS (1)
  - Scleromalacia [Not Recovered/Not Resolved]
